FAERS Safety Report 10100751 (Version 2)
Quarter: 2014Q2

REPORT INFORMATION
  Report Type: Spontaneous
  Country: US (occurrence: US)
  Receive Date: 20140423
  Receipt Date: 20140507
  Transmission Date: 20141212
  Serious: No
  Sender: FDA-Public Use
  Company Number: US-LUNDBECK-DKLU1098654

PATIENT
  Sex: Male

DRUGS (8)
  1. SABRIL     (TABLET) [Suspect]
     Indication: COMPLEX PARTIAL SEIZURES
     Route: 048
     Dates: start: 20140210
  2. SABRIL     (TABLET) [Suspect]
     Indication: EPILEPSY
     Route: 048
  3. SABRIL     (TABLET) [Suspect]
     Route: 048
  4. SABRIL     (TABLET) [Suspect]
     Route: 048
  5. SABRIL     (TABLET) [Suspect]
     Route: 048
  6. SABRIL     (TABLET) [Suspect]
     Route: 048
  7. LAMICTAL [Concomitant]
     Indication: PRODUCT USED FOR UNKNOWN INDICATION
  8. TRILEPTAL [Concomitant]
     Indication: PRODUCT USED FOR UNKNOWN INDICATION

REACTIONS (1)
  - Aura [Unknown]
